FAERS Safety Report 6993654-7 (Version None)
Quarter: 2010Q3

REPORT INFORMATION
  Report Type: 
  Country: None (occurrence: None)
  Receive Date: 20100917
  Receipt Date: 20100331
  Transmission Date: 20110219
  Serious: Yes (Hospitalization)
  Sender: FDA-Public Use
  Company Number: US-ASTRAZENECA-2009SE08393

PATIENT
  Age: 25 Year
  Sex: Female

DRUGS (7)
  1. SEROQUEL [Suspect]
     Route: 048
     Dates: start: 20061114
  2. LEXAPRO [Concomitant]
     Dates: start: 20061215
  3. ABILIFY [Concomitant]
     Dates: start: 20061215
  4. TRAZODONE HCL [Concomitant]
     Dosage: 25MG-50MG AT NIGHT AS REQUIRED
     Dates: start: 20061215
  5. TOPAMAX [Concomitant]
     Dates: start: 20090302
  6. PROZAC [Concomitant]
     Indication: DEPRESSION
  7. SERTRALINE HYDROCHLORIDE [Concomitant]
     Indication: DEPRESSION
     Dates: start: 20081223

REACTIONS (3)
  - DIABETIC HYPEROSMOLAR COMA [None]
  - SEDATION [None]
  - TYPE 2 DIABETES MELLITUS [None]
